FAERS Safety Report 9233586 (Version 1)
Quarter: 2013Q2

REPORT INFORMATION
  Report Type: Spontaneous
  Country: US (occurrence: US)
  Receive Date: 20130416
  Receipt Date: 20130416
  Transmission Date: 20140414
  Serious: No
  Sender: FDA-Public Use
  Company Number: US-BANPHARM-20120432

PATIENT
  Age: 84 Year
  Sex: Male
  Weight: 124.74 kg

DRUGS (4)
  1. ALEVE LIQUID GELS 220MG [Suspect]
     Dosage: 2 DF, BID,
     Route: 048
     Dates: start: 2010
  2. NOVOLOG [Concomitant]
  3. 24 HOUR INSULIN SHOT [Concomitant]
     Dosage: QD
     Route: 058
  4. LANTUS [Concomitant]

REACTIONS (2)
  - Blood glucose increased [Recovered/Resolved]
  - Incorrect dose administered [Unknown]
